FAERS Safety Report 6166682-1 (Version None)
Quarter: 2009Q2

REPORT INFORMATION
  Report Type: 
  Country: None (occurrence: None)
  Receive Date: 20090423
  Receipt Date: 20090423
  Transmission Date: 20091009
  Serious: Yes (Disabling, Other)
  Sender: FDA-Public Use
  Company Number: None

PATIENT
  Sex: Male
  Weight: 46.2669 kg

DRUGS (1)
  1. PHENERGAN [Suspect]
     Indication: PROCEDURAL NAUSEA
     Dosage: 25 MG ONCE IV DRIP
     Route: 041
     Dates: start: 20090416, end: 20090416

REACTIONS (10)
  - ABNORMAL BEHAVIOUR [None]
  - DISORIENTATION [None]
  - FEAR [None]
  - HALLUCINATION [None]
  - OXYGEN SATURATION DECREASED [None]
  - PANIC REACTION [None]
  - RESPIRATION ABNORMAL [None]
  - RESPIRATORY DEPRESSION [None]
  - SCREAMING [None]
  - SOMNOLENCE [None]
